FAERS Safety Report 16076166 (Version 2)
Quarter: 2019Q2

REPORT INFORMATION
  Report Type: Report from Study
  Country: NL (occurrence: NL)
  Receive Date: 20190315
  Receipt Date: 20190410
  Transmission Date: 20190711
  Serious: Yes (Other)
  Sender: FDA-Public Use
  Company Number: NL-AUROBINDO-AUR-APL-2019-012971

PATIENT

DRUGS (4)
  1. OXALIPLATIN CONCENTRATE FOR SOLUTION FOR INFUSION [Suspect]
     Active Substance: OXALIPLATIN
     Dosage: 130 MILLIGRAM/SQ. METER, (IN CYCLES OF 3 WEEKS)
     Route: 042
  2. CAPECITABINE. [Suspect]
     Active Substance: CAPECITABINE
     Indication: COLORECTAL ADENOCARCINOMA
     Dosage: 1000 MILLIGRAM/SQ. METER, TWO TIMES A DAY, (FOR 14 CONSECUTIVE)
     Route: 048
  3. OXALIPLATIN CONCENTRATE FOR SOLUTION FOR INFUSION [Suspect]
     Active Substance: OXALIPLATIN
     Indication: COLORECTAL ADENOCARCINOMA
     Dosage: 260 MILLIGRAM/SQ. METER, 3 PER WEEK
     Route: 042
  4. BEVACIZUMAB. [Suspect]
     Active Substance: BEVACIZUMAB
     Indication: COLORECTAL ADENOCARCINOMA
     Dosage: 7.5 MILLIGRAM/KILOGRAM QCY (IN CYCLES OF 3 WEEKS)
     Route: 065

REACTIONS (1)
  - Neuropathy peripheral [Unknown]
